FAERS Safety Report 6844532-5 (Version None)
Quarter: 2010Q3

REPORT INFORMATION
  Report Type: 
  Country: None (occurrence: None)
  Receive Date: 20100715
  Receipt Date: 20100623
  Transmission Date: 20110219
  Serious: Yes (Hospitalization, Other)
  Sender: FDA-Public Use
  Company Number: PHFR2010IE00525

PATIENT
  Sex: Female

DRUGS (4)
  1. CLOZARIL [Suspect]
     Indication: SCHIZOPHRENIA
     Dosage: UNK
     Dates: start: 20050210
  2. CLOZARIL [Suspect]
     Dosage: 500MG DAILY
     Route: 048
  3. LITHIUM [Concomitant]
     Indication: AFFECTIVE DISORDER
     Dosage: 1.2G DAILY
     Route: 048
  4. ELTROXIN ^GLAXO^ [Concomitant]
     Indication: HYPOTHYROIDISM
     Dosage: 15MCG
     Route: 048

REACTIONS (4)
  - HAEMOGLOBIN DECREASED [None]
  - HAEMORRHAGE [None]
  - SELF INJURIOUS BEHAVIOUR [None]
  - SKIN LACERATION [None]
